FAERS Safety Report 24828285 (Version 2)
Quarter: 2025Q2

REPORT INFORMATION
  Report Type: Spontaneous
  Country: US (occurrence: US)
  Receive Date: 20250109
  Receipt Date: 20250616
  Transmission Date: 20250717
  Serious: Yes (Life-Threatening, Other)
  Sender: BRISTOL-MYERS SQUIBB COMPANY
  Company Number: US-BRISTOL-MYERS SQUIBB COMPANY-2025-001841

PATIENT
  Sex: Male

DRUGS (1)
  1. ABECMA [Suspect]
     Active Substance: IDECABTAGENE VICLEUCEL
     Indication: Product used for unknown indication
     Route: 042
     Dates: start: 20241210

REACTIONS (4)
  - Immune effector cell-associated neurotoxicity syndrome [Unknown]
  - Encephalopathy [Not Recovered/Not Resolved]
  - Cytokine release syndrome [Recovered/Resolved]
  - Condition aggravated [Not Recovered/Not Resolved]

NARRATIVE: CASE EVENT DATE: 20241210
